FAERS Safety Report 8551863 (Version 6)
Quarter: 2013Q1

REPORT INFORMATION
  Report Type: Report from Study
  Country: US (occurrence: US)
  Receive Date: 20120508
  Receipt Date: 20130123
  Transmission Date: 20140127
  Serious: Yes (Death, Other)
  Sender: FDA-Public Use
  Company Number: US-ROCHE-1066451

PATIENT
  Age: 53 Year
  Sex: Male
  Weight: 96 kg

DRUGS (19)
  1. PEG-INTERFERON ALFA 2A [Suspect]
     Indication: HEPATITIS C
     Route: 065
  2. CITALOPRAM [Interacting]
     Indication: DEPRESSION
     Route: 065
     Dates: start: 20111128, end: 20111208
  3. CALCICHEW [Concomitant]
     Route: 065
     Dates: start: 201109
  4. METOCLOPRAMIDE [Concomitant]
     Route: 065
     Dates: start: 20110913
  5. PARACETAMOL [Concomitant]
     Route: 065
     Dates: start: 20110913
  6. ZOPICLONE [Concomitant]
  7. LISINOPRIL [Concomitant]
     Route: 065
     Dates: start: 201011
  8. IBUPROFEN [Concomitant]
     Route: 065
     Dates: start: 20110925
  9. ASPIRIN [Concomitant]
  10. THYROXINE [Concomitant]
  11. ASCORBIC ACID [Concomitant]
  12. ERGOCALCIFEROL [Concomitant]
  13. FOLIC ACID [Concomitant]
  14. NICOTINAMIDE [Concomitant]
  15. PANTHENOL [Concomitant]
  16. RETINOL [Concomitant]
  17. RIBOFLAVIN [Concomitant]
  18. THIAMINE [Concomitant]
  19. ALISPORIVIR [Suspect]
     Indication: HEPATITIS C
     Route: 048
     Dates: start: 20110906, end: 20111212

REACTIONS (4)
  - Completed suicide [Fatal]
  - Depression [Recovered/Resolved]
  - Anxiety [Recovered/Resolved]
  - Drug interaction [Unknown]
